FAERS Safety Report 8478526-3 (Version None)
Quarter: 2012Q2

REPORT INFORMATION
  Report Type: 
  Country: None (occurrence: None)
  Receive Date: 20120629
  Receipt Date: 20120618
  Transmission Date: 20120825
  Serious: Yes (Other)
  Sender: FDA-Public Use
  Company Number: US-VERTEX PHARMACEUTICALS INC.-AE-2012-009215

PATIENT
  Sex: Female
  Weight: 64.922 kg

DRUGS (5)
  1. RIBAVIRIN [Concomitant]
     Route: 048
     Dates: start: 20120607, end: 20120613
  2. RIBAVIRIN [Concomitant]
     Indication: HEPATITIS C
     Route: 048
     Dates: start: 20120425, end: 20120607
  3. INCIVEK [Suspect]
     Indication: HEPATITIS C
     Route: 048
     Dates: start: 20120425
  4. PEGASYS [Concomitant]
     Indication: HEPATITIS C
     Route: 058
     Dates: start: 20120425
  5. RIBAVIRIN [Concomitant]
     Route: 048
     Dates: start: 20120613

REACTIONS (6)
  - SKIN BURNING SENSATION [None]
  - ANAEMIA [None]
  - LICHEN PLANUS [None]
  - BLISTER [None]
  - RASH PRURITIC [None]
  - SKIN ULCER [None]
